FAERS Safety Report 15389312 (Version 1)
Quarter: 2018Q3

REPORT INFORMATION
  Report Type: Spontaneous
  Country: GB (occurrence: GB)
  Receive Date: 20180917
  Receipt Date: 20180917
  Transmission Date: 20181010
  Serious: Yes (Life-Threatening)
  Sender: FDA-Public Use
  Company Number: GB-TEVA-2018-GB-955137

PATIENT
  Age: 43 Year
  Sex: Female
  Weight: 53.52 kg

DRUGS (2)
  1. CITALOPRAM HYDROBROMIDE. [Suspect]
     Active Substance: CITALOPRAM HYDROBROMIDE
     Route: 065
     Dates: end: 20180805
  2. CITALOPRAM HYDROBROMIDE. [Suspect]
     Active Substance: CITALOPRAM HYDROBROMIDE
     Indication: DEPRESSED MOOD
     Route: 048
     Dates: start: 20150905

REACTIONS (5)
  - Hypomania [Recovered/Resolved with Sequelae]
  - Psychotic disorder [Unknown]
  - Insomnia [Unknown]
  - Dissociation [Unknown]
  - Disinhibition [Unknown]

NARRATIVE: CASE EVENT DATE: 20160403
